FAERS Safety Report 8927983 (Version 1)
Quarter: 2012Q4

REPORT INFORMATION
  Report Type: Spontaneous
  Country: US (occurrence: None)
  Receive Date: 20121121
  Receipt Date: 20121121
  Transmission Date: 20130627
  Serious: Yes (Hospitalization)
  Sender: FDA-Public Use
  Company Number: None

PATIENT
  Sex: Female
  Weight: 111.13 kg

DRUGS (2)
  1. OCELLA [Suspect]
     Indication: MENSTRUATION ABNORMAL
     Route: 048
     Dates: start: 20090312, end: 20100309
  2. OCELLA [Suspect]
     Indication: ORAL CONTRACEPTIVE
     Route: 048
     Dates: start: 20090312, end: 20100309

REACTIONS (1)
  - Gallbladder obstruction [None]
